FAERS Safety Report 4613737-6 (Version None)
Quarter: 2005Q1

REPORT INFORMATION
  Report Type: 
  Country: None (occurrence: None)
  Receive Date: 20050321
  Receipt Date: 20050127
  Transmission Date: 20050727
  Serious: Yes (Death)
  Sender: FDA-Public Use
  Company Number: FR-BOEHRINGER INGELHEIM PHARMACEUTICALS, INC.-2005-BP-01574YA

PATIENT
  Age: 74 Year
  Sex: Male

DRUGS (5)
  1. OMIX (TAMSULOSIN HYDROCHLORIDE) [Suspect]
     Route: 048
     Dates: end: 20041204
  2. VISKEN [Suspect]
     Route: 048
     Dates: end: 20041204
  3. AMARYL [Suspect]
     Route: 048
     Dates: end: 20041204
  4. VIOXX [Suspect]
     Route: 048
     Dates: start: 20021101, end: 20040101
  5. METFORMIN [Suspect]
     Route: 048
     Dates: end: 20040101

REACTIONS (14)
  - ANOXIA [None]
  - ARRHYTHMIA [None]
  - CARDIAC ARREST [None]
  - COMA [None]
  - ELECTROENCEPHALOGRAM ABNORMAL [None]
  - GENERAL PHYSICAL HEALTH DETERIORATION [None]
  - NOSOCOMIAL INFECTION [None]
  - OVERWEIGHT [None]
  - PSEUDOMONAS INFECTION [None]
  - SEPSIS [None]
  - SUDDEN CARDIAC DEATH [None]
  - SUDDEN DEATH [None]
  - SUPERINFECTION LUNG [None]
  - THERAPY NON-RESPONDER [None]
